FAERS Safety Report 14002987 (Version 3)
Quarter: 2018Q4

REPORT INFORMATION
  Report Type: Spontaneous
  Country: FR (occurrence: FR)
  Receive Date: 20170922
  Receipt Date: 20181023
  Transmission Date: 20190204
  Serious: Yes (Other)
  Sender: FDA-Public Use
  Company Number: FR-MERCK KGAA-2027424

PATIENT
  Age: 47 Year
  Sex: Female
  Weight: 80 kg

DRUGS (2)
  1. NOVOTHYROX [Suspect]
     Active Substance: LEVOTHYROXINE SODIUM
     Route: 048
     Dates: start: 20170506, end: 20170819
  2. EUTHYROX [Suspect]
     Active Substance: LEVOTHYROXINE SODIUM
     Indication: POST PROCEDURAL HYPOTHYROIDISM
     Route: 048
     Dates: start: 20170506, end: 20170819

REACTIONS (22)
  - Hypertension [Recovered/Resolved]
  - Depressed mood [Recovered/Resolved]
  - Dyspnoea [Recovered/Resolved]
  - Blood thyroid stimulating hormone normal [Recovered/Resolved]
  - Asthenopia [Recovered/Resolved]
  - Crying [Recovered/Resolved]
  - Myalgia [Recovered/Resolved]
  - Tachycardia [Recovered/Resolved]
  - Pharyngeal oedema [Recovered/Resolved]
  - Cough [Recovered/Resolved]
  - Anxiety [Recovered/Resolved]
  - Muscle spasms [Recovered/Resolved]
  - Vertigo [Recovered/Resolved]
  - Sense of oppression [Recovered/Resolved]
  - Fatigue [Recovered/Resolved]
  - Middle insomnia [Recovered/Resolved]
  - Dizziness [Recovered/Resolved]
  - Headache [Recovered/Resolved]
  - Pain in extremity [Recovered/Resolved]
  - Hypotonia [Recovered/Resolved]
  - Tremor [Recovered/Resolved]
  - Impaired work ability [Recovered/Resolved]

NARRATIVE: CASE EVENT DATE: 2017
